FAERS Safety Report 4522542-0 (Version None)
Quarter: 2004Q4

REPORT INFORMATION
  Report Type: 
  Country: None (occurrence: None)
  Receive Date: 20041207
  Receipt Date: 20041122
  Transmission Date: 20050328
  Serious: Yes (Congenital Anomaly)
  Sender: FDA-Public Use
  Company Number: EWC041141570

PATIENT
  Age: 12 Week

DRUGS (6)
  1. ZYPREXA [Suspect]
     Route: 048
     Dates: end: 20040525
  2. LEGOFER      (FERRIPROTINATE) [Concomitant]
  3. FERRUM              (FERROUS FUMARTE) [Concomitant]
  4. FILICINE                (FOLIC ACID) [Concomitant]
  5. TROPHICARD [Concomitant]
  6. CALCIUM [Concomitant]

REACTIONS (2)
  - DRUG EXPOSURE DURING PREGNANCY [None]
  - DYSPLASIA [None]
